FAERS Safety Report 7946975-5 (Version None)
Quarter: 2011Q4

REPORT INFORMATION
  Report Type: 
  Country: None (occurrence: None)
  Receive Date: 20111129
  Receipt Date: 20111116
  Transmission Date: 20120403
  Serious: Yes (Hospitalization)
  Sender: FDA-Public Use
  Company Number: FR-ASTRAZENECA-2011SE66298

PATIENT
  Age: 14373 Day
  Sex: Male
  Weight: 62.5 kg

DRUGS (3)
  1. OMEPRAZOLE [Suspect]
     Indication: ABDOMINAL PAIN UPPER
     Route: 048
     Dates: start: 20111027, end: 20111030
  2. EUPHYTOSE [Concomitant]
     Indication: ANXIETY
  3. LOPERAMIDE HCL [Concomitant]
     Indication: DIARRHOEA

REACTIONS (3)
  - AGGRESSION [None]
  - HALLUCINATION [None]
  - LOSS OF CONSCIOUSNESS [None]
